FAERS Safety Report 6945220-7 (Version None)
Quarter: 2010Q3

REPORT INFORMATION
  Report Type: 
  Country: None (occurrence: None)
  Receive Date: 20100827
  Receipt Date: 20100603
  Transmission Date: 20110219
  Serious: No
  Sender: FDA-Public Use
  Company Number: US-KINGPHARMUSA00001-K201000704

PATIENT
  Age: 35 Year
  Sex: Male
  Weight: 74.83 kg

DRUGS (5)
  1. FLECTOR [Suspect]
     Indication: INTERVERTEBRAL DISC DISORDER
     Dosage: 1 PATCH, Q12H
     Route: 061
     Dates: start: 20100602, end: 20100602
  2. FLECTOR [Suspect]
     Dosage: 1 PATCH, Q12H
     Route: 061
     Dates: start: 20100531, end: 20100531
  3. FLECTOR [Suspect]
     Dosage: 1 PATCH, PRN
     Route: 061
     Dates: start: 20090101, end: 20100501
  4. FLECTOR [Suspect]
     Dosage: 1 PATCH, PRN
     Route: 061
     Dates: start: 20100603
  5. CELEBREX [Concomitant]
     Dosage: 100-200 MG, PRN

REACTIONS (2)
  - ABDOMINAL DISCOMFORT [None]
  - DIARRHOEA [None]
